FAERS Safety Report 5773113-X (Version None)
Quarter: 2008Q2

REPORT INFORMATION
  Report Type: 
  Country: None (occurrence: None)
  Receive Date: 20080613
  Receipt Date: 20080602
  Transmission Date: 20081010
  Serious: Yes (Hospitalization)
  Sender: FDA-Public Use
  Company Number: FR-GENENTECH-262507

PATIENT
  Sex: Male

DRUGS (4)
  1. MABTHERA [Suspect]
     Indication: POLYARTERITIS NODOSA
     Dosage: 1 G, UNK
     Route: 042
     Dates: start: 20080222, end: 20080222
  2. CYCLOPHOSPHAMIDE [Suspect]
     Indication: POLYARTERITIS NODOSA
     Route: 042
     Dates: start: 20080222, end: 20080222
  3. CORTICOTHERAPY [Concomitant]
     Indication: POLYARTERITIS NODOSA
  4. ANTIBIOTIC (UNK NAME) [Suspect]

REACTIONS (1)
  - CUTANEOUS VASCULITIS [None]
